FAERS Safety Report 4833849-1 (Version None)
Quarter: 2005Q4

REPORT INFORMATION
  Report Type: 
  Country: None (occurrence: None)
  Receive Date: 20051118
  Receipt Date: 20051118
  Transmission Date: 20060501
  Serious: Yes (Other)
  Sender: FDA-Public Use
  Company Number: None

PATIENT
  Sex: Female
  Weight: 48.9885 kg

DRUGS (1)
  1. ATIVAN [Suspect]
     Indication: ANXIETY
     Dosage: 1-2 TABS.   TWICE DAILY  PO
     Route: 048
     Dates: start: 20051031, end: 20051031

REACTIONS (3)
  - AMNESIA [None]
  - FEELING ABNORMAL [None]
  - SPEECH DISORDER [None]
